FAERS Safety Report 6115466-9 (Version None)
Quarter: 2009Q1

REPORT INFORMATION
  Report Type: 
  Country: None (occurrence: None)
  Receive Date: 20090313
  Receipt Date: 20090303
  Transmission Date: 20090719
  Serious: Yes (Other)
  Sender: FDA-Public Use
  Company Number: US-JNJCH-2009006103

PATIENT
  Age: 34 Year
  Sex: Female

DRUGS (2)
  1. SUDAFED 12 HOUR [Suspect]
     Indication: SINUSITIS
     Dosage: TEXT:1 CAPLET ONCE DAILY
     Route: 048
  2. COUGH AND COLD PREPARATIONS [Suspect]
     Indication: DRUG USE FOR UNKNOWN INDICATION
     Dosage: TEXT:UNSPECIFIED
     Route: 065

REACTIONS (2)
  - EYE ROLLING [None]
  - OFF LABEL USE [None]
